FAERS Safety Report 8405718-1 (Version None)
Quarter: 2012Q2

REPORT INFORMATION
  Report Type: 
  Country: None (occurrence: None)
  Receive Date: 20120604
  Receipt Date: 20120522
  Transmission Date: 20120825
  Serious: Yes (Other)
  Sender: FDA-Public Use
  Company Number: US-ELI_LILLY_AND_COMPANY-US201205010042

PATIENT
  Sex: Female

DRUGS (1)
  1. HUMATROPE [Suspect]
     Indication: GROWTH HORMONE DEFICIENCY
     Dosage: 0.8 MG, QD
     Dates: start: 20080101

REACTIONS (5)
  - FATIGUE [None]
  - SYNCOPE [None]
  - TEMPERATURE INTOLERANCE [None]
  - TINNITUS [None]
  - FEELING HOT [None]
